FAERS Safety Report 10086680 (Version 2)
Quarter: 2014Q2

REPORT INFORMATION
  Report Type: Report from Study
  Country: US (occurrence: US)
  Receive Date: 20140418
  Receipt Date: 20140501
  Transmission Date: 20141212
  Serious: Yes (Hospitalization)
  Sender: FDA-Public Use
  Company Number: US-PFIZER INC-2014106286

PATIENT
  Age: 70 Year
  Sex: Female

DRUGS (11)
  1. CHANTIX [Suspect]
     Indication: SMOKING CESSATION THERAPY
     Dosage: 1 MG, 2X/DAY
     Dates: end: 20130629
  2. ONFI [Suspect]
     Indication: EPILEPSY
     Dosage: 5MG EVERY MORNING, 10MG EVERY EVENING
     Route: 048
     Dates: start: 20130502
  3. ONFI [Suspect]
     Dosage: 10 MG, 1X/DAY AT NIGHT
     Dates: start: 20130808
  4. COUMADIN [Concomitant]
     Dosage: 4 MG TUE/THURS AND 6 MG SAT/SUN/MON/WED/FRI
     Dates: start: 2009
  5. ASPIRIN [Concomitant]
     Dosage: 81 MG, 1X/DAY
     Dates: start: 2009
  6. SINGULAIR [Concomitant]
     Indication: ASTHMA
     Dosage: 10 MG, 1X/DAY
     Dates: start: 2008
  7. DOCUSATE SODIUM [Concomitant]
     Indication: CONSTIPATION
     Dosage: 100 MG, 3X/DAY
     Dates: start: 2009
  8. PROMETHAZINE [Concomitant]
     Indication: NAUSEA
     Dosage: 25 MG, AS NEEDED
     Dates: start: 2009
  9. OXYCODONE APAP [Concomitant]
     Indication: BACK PAIN
     Dosage: 5/325 MG, PRN
     Dates: start: 2010
  10. LEVOTHYROXINE [Concomitant]
     Indication: HYPERTHYROIDISM
     Dosage: 50 MG, UNK
     Dates: start: 20130619
  11. DEPAKOTE - SLOW RELEASE [Suspect]
     Dosage: 500 MG, 1X/DAY  AT NIGHT
     Dates: start: 20120727

REACTIONS (1)
  - Influenza [Recovered/Resolved]
